FAERS Safety Report 6884120-8 (Version None)
Quarter: 2010Q3

REPORT INFORMATION
  Report Type: 
  Country: None (occurrence: None)
  Receive Date: 20100729
  Receipt Date: 20100713
  Transmission Date: 20110219
  Serious: Yes (Hospitalization)
  Sender: FDA-Public Use
  Company Number: IE-GENENTECH-303286

PATIENT
  Sex: Female

DRUGS (22)
  1. XOLAIR [Suspect]
     Indication: ASTHMA
     Dosage: 225 MG, UNK
     Dates: start: 20100615
  2. APIDRA [Concomitant]
     Indication: PRODUCT USED FOR UNKNOWN INDICATION
     Dosage: UNK
  3. LANTUS [Concomitant]
     Indication: PRODUCT USED FOR UNKNOWN INDICATION
     Dosage: UNK
     Dates: start: 20100711
  4. TETRACOSACTIDE [Concomitant]
     Indication: PRODUCT USED FOR UNKNOWN INDICATION
  5. ZANEDIP [Concomitant]
     Indication: PRODUCT USED FOR UNKNOWN INDICATION
  6. CRESTOR [Concomitant]
     Indication: PRODUCT USED FOR UNKNOWN INDICATION
  7. RAMIPRIL [Concomitant]
     Indication: PRODUCT USED FOR UNKNOWN INDICATION
  8. EZETROL [Concomitant]
     Indication: PRODUCT USED FOR UNKNOWN INDICATION
  9. BRICANYL [Concomitant]
     Indication: PRODUCT USED FOR UNKNOWN INDICATION
  10. BRICANYL TURBOHALER [Concomitant]
     Indication: PRODUCT USED FOR UNKNOWN INDICATION
  11. SPIRIVA [Concomitant]
     Indication: PRODUCT USED FOR UNKNOWN INDICATION
  12. SERETIDE [Concomitant]
     Indication: PRODUCT USED FOR UNKNOWN INDICATION
  13. FOSAMAX [Concomitant]
     Indication: PRODUCT USED FOR UNKNOWN INDICATION
  14. JANUMET [Concomitant]
     Indication: PRODUCT USED FOR UNKNOWN INDICATION
  15. TELFAST (GERMANY) [Concomitant]
     Indication: PRODUCT USED FOR UNKNOWN INDICATION
  16. PHOSPHATE-SANDOZ [Concomitant]
     Indication: PRODUCT USED FOR UNKNOWN INDICATION
  17. FLUNARIZINE [Concomitant]
     Indication: PRODUCT USED FOR UNKNOWN INDICATION
  18. SERC [Concomitant]
     Indication: PRODUCT USED FOR UNKNOWN INDICATION
  19. MEDRONE [Concomitant]
     Indication: PRODUCT USED FOR UNKNOWN INDICATION
  20. SENNA [Concomitant]
     Indication: PRODUCT USED FOR UNKNOWN INDICATION
  21. TRAMADOL HYDROCHLORIDE [Concomitant]
     Indication: PRODUCT USED FOR UNKNOWN INDICATION
  22. SOLPADOL [Concomitant]
     Indication: PRODUCT USED FOR UNKNOWN INDICATION

REACTIONS (7)
  - ATAXIA [None]
  - BLOOD GLUCOSE ABNORMAL [None]
  - DIZZINESS [None]
  - DYSPNOEA [None]
  - RESPIRATORY DISTRESS [None]
  - THROAT TIGHTNESS [None]
  - VISION BLURRED [None]
